FAERS Safety Report 13746934 (Version 6)
Quarter: 2019Q3

REPORT INFORMATION
  Report Type: Spontaneous
  Country: DE (occurrence: DE)
  Receive Date: 20170712
  Receipt Date: 20190830
  Transmission Date: 20191004
  Serious: Yes (Life-Threatening, Hospitalization, Congenital Anomaly, Other)
  Sender: FDA-Public Use
  Company Number: PHHY2017DE099452

PATIENT
  Sex: Male
  Weight: 2.74 kg

DRUGS (8)
  1. RITUXIMAB. [Suspect]
     Active Substance: RITUXIMAB
     Indication: DIFFUSE LARGE B-CELL LYMPHOMA
     Dosage: AS SINGLE DOSE FOR THREE CYCLES
     Route: 064
  2. CYCLOPHOSPHAMIDE. [Suspect]
     Active Substance: CYCLOPHOSPHAMIDE
     Indication: FOETAL EXPOSURE DURING PREGNANCY
     Dosage: 1400 MG, CYCLIC
     Route: 064
  3. DOXORUBICIN [Suspect]
     Active Substance: DOXORUBICIN
     Dosage: AS SINGLE DOSE FOR THREE CYCLES
     Route: 064
  4. PREDNISOLONE. [Suspect]
     Active Substance: PREDNISOLONE
     Indication: FOETAL EXPOSURE DURING PREGNANCY
     Dosage: 100 MG, UNK
     Route: 064
  5. DOXORUBICIN [Suspect]
     Active Substance: DOXORUBICIN
     Indication: FOETAL EXPOSURE DURING PREGNANCY
     Dosage: 95 MG, CYCLIC
     Route: 064
  6. VINCRISTINE [Suspect]
     Active Substance: VINCRISTINE
     Indication: FOETAL EXPOSURE DURING PREGNANCY
     Dosage: 2 MG, CYCLIC
     Route: 064
  7. VINCRISTINE [Suspect]
     Active Substance: VINCRISTINE
     Dosage: AS SINGLE DOSE FOR THREE CYCLES
     Route: 064
  8. RITUXIMAB. [Suspect]
     Active Substance: RITUXIMAB
     Indication: FOETAL EXPOSURE DURING PREGNANCY
     Dosage: 700 MG, CYCLIC
     Route: 064

REACTIONS (10)
  - Respiratory failure [Recovered/Resolved]
  - Skin discolouration [Recovered/Resolved]
  - Congenital cardiovascular anomaly [Recovered/Resolved]
  - Cardiovascular insufficiency [Recovered/Resolved]
  - Cardiotoxicity [Recovered/Resolved]
  - Cardiomyopathy [Recovered/Resolved]
  - Congestive cardiomyopathy [Recovering/Resolving]
  - Heart disease congenital [Recovering/Resolving]
  - Premature baby [Unknown]
  - Foetal exposure during pregnancy [Recovering/Resolving]
